FAERS Safety Report 8390154-7 (Version None)
Quarter: 2012Q2

REPORT INFORMATION
  Report Type: 
  Country: None (occurrence: None)
  Receive Date: 20120529
  Receipt Date: 20120522
  Transmission Date: 20120825
  Serious: Yes (Hospitalization, Disabling, Other)
  Sender: FDA-Public Use
  Company Number: US-PFIZER INC-2012095583

PATIENT
  Sex: Male
  Weight: 81.633 kg

DRUGS (3)
  1. FLAGYL [Suspect]
     Indication: ABDOMINAL SEPSIS
     Dosage: UNK
     Route: 042
  2. PROGRAF [Concomitant]
     Indication: LIVER TRANSPLANT REJECTION
     Dosage: 2 MG, 2X/DAY
     Route: 048
     Dates: start: 20040628
  3. FLAGYL [Suspect]
     Dosage: UNK
     Route: 048

REACTIONS (4)
  - HOMICIDAL IDEATION [None]
  - SUICIDAL IDEATION [None]
  - FINGER AMPUTATION [None]
  - NEUROPATHY PERIPHERAL [None]
